FAERS Safety Report 11743413 (Version 2)
Quarter: 2015Q4

REPORT INFORMATION
  Report Type: Spontaneous
  Country: FR (occurrence: FR)
  Receive Date: 20151116
  Receipt Date: 20151119
  Transmission Date: 20160304
  Serious: Yes (Hospitalization)
  Sender: FDA-Public Use
  Company Number: FR-SA-2015SA178813

PATIENT
  Age: 48 Year
  Sex: Male

DRUGS (12)
  1. GENTAMICIN. [Concomitant]
     Active Substance: GENTAMICIN
     Dates: start: 20150414
  2. CUBICIN [Suspect]
     Active Substance: DAPTOMYCIN
     Route: 042
     Dates: start: 20150414, end: 20150608
  3. COUMADIN [Concomitant]
     Active Substance: WARFARIN SODIUM
     Dates: start: 20150224
  4. EUPANTOL [Suspect]
     Active Substance: PANTOPRAZOLE SODIUM
     Dosage: FORM IS GASTRO RESISTANT TABLET
     Route: 048
     Dates: start: 20150507, end: 20150526
  5. DAFALGAN [Concomitant]
     Active Substance: ACETAMINOPHEN
     Dosage: DOSE:2 CAPSULED IF REQUIRED, MAXIMUM 8 CAPSULES PER DAY
     Dates: start: 20150302
  6. COUMADIN [Concomitant]
     Active Substance: WARFARIN SODIUM
     Dates: start: 20150520
  7. HEPARIN CALCIUM [Concomitant]
     Active Substance: HEPARIN CALCIUM
     Dates: start: 20150224
  8. AMLOR [Concomitant]
     Active Substance: AMLODIPINE BESYLATE
     Dates: start: 20150302, end: 20150414
  9. GENTAMICIN. [Concomitant]
     Active Substance: GENTAMICIN
     Dates: start: 20150416, end: 20150507
  10. RIFAMPICIN [Suspect]
     Active Substance: RIFAMPIN
     Indication: ENDOCARDITIS
     Route: 042
     Dates: start: 20150427, end: 20150525
  11. TARDYFERON [Concomitant]
     Active Substance: FERROUS SULFATE\FOLIC ACID
     Dates: start: 20150302, end: 20150414
  12. INEXIUM [Concomitant]
     Active Substance: ESOMEPRAZOLE
     Dates: start: 20150427, end: 20150507

REACTIONS (1)
  - Neutropenia [Recovered/Resolved]

NARRATIVE: CASE EVENT DATE: 20150515
